FAERS Safety Report 21323496 (Version 3)
Quarter: 2024Q2

REPORT INFORMATION
  Report Type: Report from Study
  Country: US (occurrence: US)
  Receive Date: 20220912
  Receipt Date: 20240422
  Transmission Date: 20240716
  Serious: Yes (Other)
  Sender: FDA-Public Use
  Company Number: US-ABBVIE-22K-163-4533968-00

PATIENT
  Sex: Male

DRUGS (2)
  1. IMBRUVICA [Suspect]
     Active Substance: IBRUTINIB
     Indication: Chronic lymphocytic leukaemia
     Dosage: END DATE- 2022
     Route: 048
  2. CALQUENCE [Concomitant]
     Active Substance: ACALABRUTINIB
     Indication: Product used for unknown indication

REACTIONS (18)
  - Brain fog [Unknown]
  - Thyroid disorder [Unknown]
  - Peripheral swelling [Unknown]
  - Meniscus injury [Unknown]
  - Dizziness [Unknown]
  - Cartilage atrophy [Unknown]
  - Back pain [Unknown]
  - Pain [Unknown]
  - Swelling [Unknown]
  - Fatigue [Unknown]
  - Arthralgia [Unknown]
  - Pain in extremity [Unknown]
  - Pain [Unknown]
  - Arthralgia [Unknown]
  - Diabetes mellitus [Unknown]
  - Asthenia [Unknown]
  - Balance disorder [Unknown]
  - Memory impairment [Unknown]
